FAERS Safety Report 9207656 (Version 1)
Quarter: 2013Q2

REPORT INFORMATION
  Report Type: Report from Study
  Country: JP (occurrence: JP)
  Receive Date: 20130403
  Receipt Date: 20130403
  Transmission Date: 20140414
  Serious: Yes (Hospitalization)
  Sender: FDA-Public Use
  Company Number: JP-ROCHE-648114

PATIENT
  Age: 60 Year
  Sex: Male

DRUGS (18)
  1. TOCILIZUMAB [Suspect]
     Indication: RHEUMATOID ARTHRITIS
     Route: 041
     Dates: start: 20090422, end: 20090422
  2. TOCILIZUMAB [Suspect]
     Route: 041
     Dates: start: 20090507, end: 20090507
  3. TOCILIZUMAB [Suspect]
     Route: 041
     Dates: start: 20090525, end: 20090525
  4. TOCILIZUMAB [Suspect]
     Route: 041
     Dates: start: 20090622, end: 20090622
  5. PREDONINE [Suspect]
     Indication: RHEUMATOID ARTHRITIS
     Route: 048
     Dates: start: 20090530, end: 20090530
  6. PREDONINE [Suspect]
     Route: 048
     Dates: start: 20090711, end: 20090805
  7. PREDONINE [Suspect]
     Route: 042
     Dates: start: 20090530, end: 20090530
  8. PREDONINE [Suspect]
     Route: 042
     Dates: start: 20090711, end: 20090805
  9. VOLTAREN [Suspect]
     Indication: RHEUMATOID ARTHRITIS
     Route: 048
  10. ACTOS [Concomitant]
     Indication: DIABETES MELLITUS
     Route: 048
  11. PARIET [Concomitant]
     Indication: PROPHYLAXIS
     Route: 048
  12. NORVASC [Concomitant]
     Indication: HYPERTENSION
     Route: 048
  13. MUCOSTA [Concomitant]
     Indication: PROPHYLAXIS
     Dosage: DOSE FORM: ORAL FORMULATION  (NOT OTHERWISE SPECIFIED). POR
     Route: 048
  14. CELCOX [Concomitant]
     Indication: RHEUMATOID ARTHRITIS
     Dosage: DRUG NAME: CELECOX
     Route: 048
  15. SEIBULE [Concomitant]
     Indication: DIABETES MELLITUS
     Route: 048
  16. SODIUM HYALURONATE [Concomitant]
     Indication: RHEUMATOID ARTHRITIS
     Dosage: SVENYL
     Route: 014
  17. PROGRAFT [Concomitant]
     Indication: RHEUMATOID ARTHRITIS
     Route: 048
  18. RINDERON [Concomitant]
     Indication: RHEUMATOID ARTHRITIS
     Route: 014
     Dates: start: 20090602, end: 20090602

REACTIONS (8)
  - Peritonitis [Recovered/Resolved]
  - Diarrhoea [Recovered/Resolved]
  - Decreased appetite [Recovered/Resolved]
  - Abdominal distension [Recovered/Resolved]
  - Small intestinal perforation [Recovered/Resolved]
  - Abdominal abscess [Recovered/Resolved]
  - Intestinal obstruction [Recovered/Resolved]
  - Ileus paralytic [Recovered/Resolved]
